FAERS Safety Report 16641836 (Version 1)
Quarter: 2019Q3

REPORT INFORMATION
  Report Type: Spontaneous
  Country: US (occurrence: US)
  Receive Date: 20190726
  Receipt Date: 20190726
  Transmission Date: 20191004
  Serious: Yes (Other)
  Sender: FDA-Public Use
  Company Number: None

PATIENT
  Age: 49 Year
  Sex: Female
  Weight: 100.35 kg

DRUGS (16)
  1. IRBASARTAN [Concomitant]
     Active Substance: IRBESARTAN
  2. SUPER B [Concomitant]
  3. MULTIVITAMIN [Concomitant]
     Active Substance: VITAMINS
  4. ADAIR [Concomitant]
  5. PRILOSAC [Concomitant]
  6. MAGNESIUM OXIDE. [Concomitant]
     Active Substance: MAGNESIUM OXIDE
  7. XOPENEX [Concomitant]
     Active Substance: LEVALBUTEROL HYDROCHLORIDE
  8. VITAMIN C [Concomitant]
     Active Substance: ASCORBIC ACID
  9. BEE POLLEN [Concomitant]
     Active Substance: BEE POLLEN
  10. VITAMIN D WITH K2 [Concomitant]
  11. BREO ELLIPTA [Suspect]
     Active Substance: FLUTICASONE FUROATE\VILANTEROL TRIFENATATE
     Indication: ASTHMA
     Dosage: ?          QUANTITY:1 INHALATION(S);?
     Dates: start: 20190712, end: 20190718
  12. CPAP [Suspect]
     Active Substance: DEVICE
  13. ATROVASTATIN [Concomitant]
     Active Substance: ATORVASTATIN CALCIUM
  14. LOLESTRIN FE [Concomitant]
  15. NACENT IODINE [Concomitant]
  16. CHROMIUM [Concomitant]
     Active Substance: CHROMIC CHLORIDE\CHROMIUM

REACTIONS (5)
  - Localised oedema [None]
  - Chest discomfort [None]
  - Pruritus [None]
  - Throat tightness [None]
  - Oedema peripheral [None]

NARRATIVE: CASE EVENT DATE: 20190718
